FAERS Safety Report 7768695-2 (Version None)
Quarter: 2011Q3

REPORT INFORMATION
  Report Type: 
  Country: None (occurrence: None)
  Receive Date: 20110922
  Receipt Date: 20100824
  Transmission Date: 20111222
  Serious: Yes (Other)
  Sender: FDA-Public Use
  Company Number: US-ASTRAZENECA-2008UW01148

PATIENT
  Age: 27 Year
  Sex: Male
  Weight: 91.2 kg

DRUGS (41)
  1. SEROQUEL [Suspect]
     Dosage: 100-400 MG
     Route: 048
     Dates: start: 20010101, end: 20060101
  2. CLOZAPINE [Concomitant]
     Dates: start: 20060101
  3. THORAZINE [Concomitant]
     Dates: start: 20040101
  4. SEROQUEL [Suspect]
     Indication: SCHIZOPHRENIA
     Dosage: 100-500 MG
     Route: 048
     Dates: start: 19980101, end: 20050101
  5. SEROQUEL [Suspect]
     Dosage: 100-400 MG
     Route: 048
     Dates: start: 20010101, end: 20060101
  6. LORTAB [Concomitant]
     Dosage: 10/500 1Q8 HPRN
     Dates: start: 20050825
  7. RISPERDAL [Concomitant]
     Indication: DEPRESSION
     Dates: start: 19920101
  8. ZYPREXA [Concomitant]
     Indication: ANXIETY
     Dates: start: 19920101
  9. HALDOL [Concomitant]
     Dates: start: 20040101
  10. SEROQUEL [Suspect]
     Dosage: 400-1200 MG
     Route: 048
     Dates: start: 19980921, end: 20060223
  11. NAPROXEN [Concomitant]
  12. CLONAZEPAM [Concomitant]
     Dosage: 0.5-1 MG
     Dates: start: 20040118
  13. RISPERDAL [Concomitant]
     Indication: ANXIETY
     Dates: start: 19920101
  14. ZYPREXA [Concomitant]
     Indication: DEPRESSION
     Dates: start: 19920101
  15. ZYPREXA [Concomitant]
     Indication: SCHIZOPHRENIA
     Dates: start: 19920101
  16. SEROQUEL [Suspect]
     Indication: DEPRESSION
     Dosage: 100-500 MG
     Route: 048
     Dates: start: 19980101, end: 20050101
  17. SEROQUEL [Suspect]
     Dosage: 100-400 MG
     Route: 048
     Dates: start: 20010101, end: 20060101
  18. ACCUPRIL [Concomitant]
     Dosage: 10-20 MG
     Dates: start: 20050707
  19. NORFLEX [Concomitant]
     Dates: start: 20050825
  20. ABILIFY [Concomitant]
     Dates: start: 20040118
  21. SEROQUEL [Suspect]
     Dosage: 400-1200 MG
     Route: 048
     Dates: start: 19980921, end: 20060223
  22. SEROQUEL [Suspect]
     Dosage: 400-1200 MG
     Route: 048
     Dates: start: 19980921, end: 20060223
  23. SEROQUEL [Suspect]
     Dosage: 100-400 MG
     Route: 048
     Dates: start: 20010101, end: 20060101
  24. SEROQUEL [Suspect]
     Dosage: 100-400 MG
     Route: 048
     Dates: start: 20010101, end: 20060101
  25. COGENTIN [Concomitant]
     Dates: start: 20040908
  26. SEROQUEL [Suspect]
     Indication: SCHIZOAFFECTIVE DISORDER
     Dosage: 100-500 MG
     Route: 048
     Dates: start: 19980101, end: 20050101
  27. SEROQUEL [Suspect]
     Dosage: 100-400 MG
     Route: 048
     Dates: start: 20010101, end: 20060101
  28. SEROQUEL [Suspect]
     Dosage: 100-400 MG
     Route: 048
     Dates: start: 20010101, end: 20060101
  29. DEPAKOTE ER [Concomitant]
     Dates: start: 20040118
  30. MIRTAZAPINE [Concomitant]
     Dosage: 30-60 MG
     Dates: start: 20040908
  31. MOBIC [Concomitant]
     Dates: start: 20050707
  32. RISPERDAL [Concomitant]
     Indication: SCHIZOPHRENIA
     Dates: start: 19920101
  33. LEXAPRO [Concomitant]
  34. TRILAFON [Concomitant]
     Dates: start: 20040101
  35. NPH INSULIN [Concomitant]
     Dosage: 21 UNITS BID
  36. GEODON [Concomitant]
     Dates: start: 20060101
  37. SEROQUEL [Suspect]
     Indication: ANXIETY
     Dosage: 100-500 MG
     Route: 048
     Dates: start: 19980101, end: 20050101
  38. SEROQUEL [Suspect]
     Dosage: 400-1200 MG
     Route: 048
     Dates: start: 19980921, end: 20060223
  39. SEROQUEL [Suspect]
     Dosage: 100-400 MG
     Route: 048
     Dates: start: 20010101, end: 20060101
  40. GABAPENTIN [Concomitant]
     Dates: start: 20050707
  41. ABILIFY [Concomitant]
     Dates: start: 20070101

REACTIONS (10)
  - TYPE 2 DIABETES MELLITUS [None]
  - DIABETIC COMPLICATION [None]
  - HYPERGLYCAEMIC HYPEROSMOLAR NONKETOTIC SYNDROME [None]
  - SPINA BIFIDA [None]
  - DIABETIC COMA [None]
  - CARDIAC DISORDER [None]
  - HYPERINSULINISM [None]
  - DIABETES MELLITUS INADEQUATE CONTROL [None]
  - HYPOGLYCAEMIA [None]
  - BLOOD GLUCOSE DECREASED [None]
